FAERS Safety Report 7480346-3 (Version None)
Quarter: 2011Q2

REPORT INFORMATION
  Report Type: 
  Country: None (occurrence: None)
  Receive Date: 20110504
  Receipt Date: 20110426
  Transmission Date: 20111010
  Serious: Yes (Life-Threatening, Hospitalization)
  Sender: FDA-Public Use
  Company Number: WWISSUE-591

PATIENT
  Sex: Female

DRUGS (4)
  1. TORADOL [Concomitant]
  2. ROBAXIN [Concomitant]
  3. CYMBALTA [Concomitant]
  4. CEFTRIAXONE [Suspect]
     Indication: SINUSITIS
     Dosage: INJECTION 1G/10ML
     Dates: start: 20110421

REACTIONS (5)
  - URTICARIA [None]
  - DYSPNOEA [None]
  - DRUG HYPERSENSITIVITY [None]
  - CHEST DISCOMFORT [None]
  - PRURITUS [None]
